FAERS Safety Report 4652287-8 (Version None)
Quarter: 2005Q2

REPORT INFORMATION
  Report Type: 
  Country: None (occurrence: None)
  Receive Date: 20050504
  Receipt Date: 20050422
  Transmission Date: 20051028
  Serious: Yes (Hospitalization)
  Sender: FDA-Public Use
  Company Number: US-ROCHE-403019

PATIENT
  Age: 59 Year
  Sex: Male

DRUGS (3)
  1. PEGASYS [Suspect]
     Indication: HEPATITIS C
     Dosage: STRENGTH = 180 MCG/0.5 ML.
     Route: 058
     Dates: start: 20040824, end: 20050315
  2. COPEGUS [Suspect]
     Indication: HEPATITIS C
     Route: 048
     Dates: start: 20040824, end: 20050315
  3. MS CONTIN [Concomitant]
     Indication: ARTHRITIS
     Route: 048

REACTIONS (5)
  - ANAEMIA [None]
  - FALL [None]
  - NEUROPATHY [None]
  - PSORIASIS [None]
  - SUICIDE ATTEMPT [None]
